FAERS Safety Report 8475373-3 (Version None)
Quarter: 2012Q2

REPORT INFORMATION
  Report Type: 
  Country: None (occurrence: None)
  Receive Date: 20120628
  Receipt Date: 20120614
  Transmission Date: 20120825
  Serious: Yes (Other)
  Sender: FDA-Public Use
  Company Number: GB-ELI_LILLY_AND_COMPANY-GB201206005396

PATIENT
  Sex: Female

DRUGS (1)
  1. PROZAC [Suspect]
     Indication: DEPRESSION
     Dosage: 20 MG, SINGLE

REACTIONS (7)
  - ERYTHEMA [None]
  - VOMITING [None]
  - HOT FLUSH [None]
  - ABDOMINAL PAIN UPPER [None]
  - MALAISE [None]
  - DIARRHOEA [None]
  - HOMICIDAL IDEATION [None]
